FAERS Safety Report 8866194 (Version 1)
Quarter: 2012Q4

REPORT INFORMATION
  Report Type: 
  Country: JP (occurrence: JP)
  Receive Date: 20121025
  Receipt Date: 20121025
  Transmission Date: 20130627
  Serious: Yes (Death, Hospitalization)
  Sender: FDA-Public Use
  Company Number: PHHY2011JP83922

PATIENT
  Age: 57 Year
  Sex: Male
  Weight: 57 kg

DRUGS (6)
  1. AFINITOR [Suspect]
     Indication: METASTATIC RENAL CELL CARCINOMA
     Dosage: 10 mg, daily
     Route: 048
     Dates: start: 20100908
  2. SUNITINIB MALATE [Concomitant]
     Indication: METASTATIC RENAL CELL CARCINOMA
     Dosage: 25 mg, UNK
     Route: 048
     Dates: start: 20100430, end: 20100903
  3. DIGOSIN [Concomitant]
     Dosage: 0.125 mg
     Route: 048
  4. LUPRAC [Concomitant]
     Dosage: 8 mg
     Route: 048
  5. ARTIST [Concomitant]
     Dosage: 1.25 mg, UNK
     Route: 048
  6. FERO-GRADUMET [Concomitant]
     Dosage: 105 mg, UNK
     Route: 048

REACTIONS (4)
  - Enteritis infectious [Fatal]
  - Dehydration [Fatal]
  - Diarrhoea [Fatal]
  - Renal failure acute [Fatal]
